FAERS Safety Report 4732728-8 (Version None)
Quarter: 2005Q3

REPORT INFORMATION
  Report Type: 
  Country: None (occurrence: None)
  Receive Date: 20050801
  Receipt Date: 20050719
  Transmission Date: 20060218
  Serious: Yes (Life-Threatening)
  Sender: FDA-Public Use
  Company Number: RENA-11399

PATIENT
  Age: 70 Year
  Sex: Female

DRUGS (11)
  1. PHOSBLOCK - 250 MG TABLETS [Suspect]
     Indication: HYPERPHOSPHATAEMIA
     Dosage: 6 G DAILY PO
     Route: 048
     Dates: start: 20041227, end: 20050423
  2. PHOSBLOCK - 250 MG TABLETS [Suspect]
     Indication: HYPERPHOSPHATAEMIA
     Dosage: 4.5 G DAILY PO
     Route: 048
     Dates: start: 20040928, end: 20041226
  3. PHOSBLOCK - 250 MG TABLETS [Suspect]
     Indication: HYPERPHOSPHATAEMIA
     Dosage: 3 G DAILY PO
     Route: 048
     Dates: start: 20040810, end: 20040927
  4. CANDESARTAN CILEXETIL [Concomitant]
  5. AMEZINIUM METILSULFAE [Concomitant]
  6. CALCIUM POLYSTYRENE SULFONATE [Concomitant]
  7. TRIAZOLAM [Concomitant]
  8. AMLODIPINE BESYLATE [Concomitant]
  9. FAMOTIDINE [Concomitant]
  10. SENNOSIDE [Concomitant]
  11. REBAMIPIDE [Concomitant]

REACTIONS (4)
  - BLOOD PRESSURE INCREASED [None]
  - DIVERTICULAR PERFORATION [None]
  - HAEMODIALYSIS [None]
  - LARGE INTESTINE PERFORATION [None]
